FAERS Safety Report 8363755-X (Version None)
Quarter: 2012Q2

REPORT INFORMATION
  Report Type: 
  Country: None (occurrence: None)
  Receive Date: 20120515
  Receipt Date: 20120515
  Transmission Date: 20120825
  Serious: Yes (Other)
  Sender: FDA-Public Use
  Company Number: None

PATIENT
  Sex: Female
  Weight: 70 kg

DRUGS (1)
  1. GAMUNEX [Suspect]
     Indication: IMMUNODEFICIENCY COMMON VARIABLE
     Dosage: 40GM ONCE IV DRIP
     Route: 041
     Dates: start: 20120404, end: 20120404

REACTIONS (2)
  - SKIN DISORDER [None]
  - INFUSION SITE RASH [None]
